FAERS Safety Report 15391525 (Version 1)
Quarter: 2018Q4

REPORT INFORMATION
  Report Type: Other
  Country: None (occurrence: US)
  Receive Date: 20180917
  Receipt Date: 20180917
  Transmission Date: 20190204
  Serious: Yes (Death, Life-Threatening, Other)
  Sender: FDA-Public Use
  Company Number: US-MEDAC PHARMA, INC.-2054983

PATIENT
  Sex: Male

DRUGS (6)
  1. CYCLOSPORINE. [Suspect]
     Active Substance: CYCLOSPORINE
  2. FLUDARABINE [Concomitant]
     Active Substance: FLUDARABINE PHOSPHATE
  3. METHOTREXATE. [Suspect]
     Active Substance: METHOTREXATE
  4. BUSULFAN. [Concomitant]
     Active Substance: BUSULFAN
  5. CYCLOPHOSPHAMIDE. [Concomitant]
     Active Substance: CYCLOPHOSPHAMIDE
  6. CAMPATH [Concomitant]
     Active Substance: ALEMTUZUMAB

REACTIONS (2)
  - Atypical mycobacterial pneumonia [Fatal]
  - Autoimmune haemolytic anaemia [Unknown]
